FAERS Safety Report 9778251 (Version 2)
Quarter: 2014Q1

REPORT INFORMATION
  Report Type: Spontaneous
  Country: US (occurrence: US)
  Receive Date: 20131223
  Receipt Date: 20140211
  Transmission Date: 20141002
  Serious: Yes (Other)
  Sender: FDA-Public Use
  Company Number: US-ELI_LILLY_AND_COMPANY-US201312006686

PATIENT
  Age: 51 Year
  Sex: Female
  Weight: 51.25 kg

DRUGS (2)
  1. HUMALOG LISPRO [Suspect]
     Indication: PRODUCT USED FOR UNKNOWN INDICATION
     Route: 058
  2. HUMALOG LISPRO [Suspect]
     Route: 058

REACTIONS (4)
  - Diabetic ketoacidosis [Unknown]
  - Blood glucose increased [Unknown]
  - Vomiting [Unknown]
  - Scar [Unknown]
